FAERS Safety Report 8240821-0 (Version None)
Quarter: 2012Q1

REPORT INFORMATION
  Report Type: 
  Country: None (occurrence: None)
  Receive Date: 20120328
  Receipt Date: 20120321
  Transmission Date: 20120608
  Serious: Yes (Other)
  Sender: FDA-Public Use
  Company Number: PHHY2012BR025607

PATIENT
  Sex: Female

DRUGS (3)
  1. DIOVAN [Suspect]
  2. ONBREZ [Suspect]
     Dosage: 150 UKN, UNK
  3. FORADIL [Suspect]
     Dosage: 125 UKN, UNK

REACTIONS (4)
  - HYPOTHYROIDISM [None]
  - PRURITUS [None]
  - CHRONIC OBSTRUCTIVE PULMONARY DISEASE [None]
  - BLOOD POTASSIUM DECREASED [None]
